FAERS Safety Report 9322446 (Version 3)
Quarter: 2013Q2

REPORT INFORMATION
  Report Type: Report from Study
  Country: US (occurrence: US)
  Receive Date: 20130531
  Receipt Date: 20130624
  Transmission Date: 20140414
  Serious: Yes (Hospitalization)
  Sender: FDA-Public Use
  Company Number: US-ACTELION-A-US2013-83685

PATIENT
  Age: 64 Year
  Sex: Female

DRUGS (3)
  1. VELETRI [Suspect]
     Indication: PULMONARY ARTERIAL HYPERTENSION
     Dosage: 10 NG/KG, PER MIN
     Route: 042
     Dates: start: 20130426
  2. SILDENAFIL [Concomitant]
     Indication: PULMONARY ARTERIAL HYPERTENSION
  3. COUMADIN [Concomitant]

REACTIONS (7)
  - Mechanical ventilation [Unknown]
  - Dysphonia [Unknown]
  - Aphonia [Unknown]
  - Nervousness [Unknown]
  - Oropharyngeal pain [Unknown]
  - Fatigue [Unknown]
  - Blood pressure systolic decreased [Unknown]
